FAERS Safety Report 25921965 (Version 1)
Quarter: 2025Q4

REPORT INFORMATION
  Report Type: Spontaneous
  Country: EU (occurrence: EU)
  Receive Date: 20251015
  Receipt Date: 20251015
  Transmission Date: 20260118
  Serious: Yes (Hospitalization)
  Sender: ABBVIE
  Company Number: EU-ABBVIE-6499632

PATIENT

DRUGS (3)
  1. SKYRIZI [Suspect]
     Active Substance: RISANKIZUMAB-RZAA
     Indication: Rheumatic disorder
     Route: 058
     Dates: start: 202404
  2. SKYRIZI [Suspect]
     Active Substance: RISANKIZUMAB-RZAA
     Route: 058
     Dates: start: 20231228
  3. SKYRIZI [Suspect]
     Active Substance: RISANKIZUMAB-RZAA
     Route: 058

REACTIONS (10)
  - Herpes virus infection [Unknown]
  - Pyrexia [Unknown]
  - Diarrhoea haemorrhagic [Recovered/Resolved]
  - Haemoglobin increased [Unknown]
  - Diarrhoea haemorrhagic [Unknown]
  - Colitis [Unknown]
  - Stoma site reaction [Unknown]
  - Granuloma [Unknown]
  - Arthropathy [Unknown]
  - Oral herpes [Unknown]

NARRATIVE: CASE EVENT DATE: 20231201
